FAERS Safety Report 9290861 (Version 1)
Quarter: 2013Q2

REPORT INFORMATION
  Report Type: Spontaneous
  Country: US (occurrence: None)
  Receive Date: 20130514
  Receipt Date: 20130514
  Transmission Date: 20140414
  Serious: Yes (Hospitalization)
  Sender: FDA-Public Use
  Company Number: None

PATIENT
  Age: 70 Year
  Sex: Female
  Weight: 56.3 kg

DRUGS (1)
  1. XARELTO [Suspect]
     Indication: DEEP VEIN THROMBOSIS
     Route: 048
     Dates: start: 20130508, end: 20130510

REACTIONS (6)
  - Abdominal pain [None]
  - Renal failure acute [None]
  - Acute hepatic failure [None]
  - Coagulopathy [None]
  - Abdominal wall haematoma [None]
  - Haemorrhage [None]
